FAERS Safety Report 17481195 (Version 1)
Quarter: 2020Q1

REPORT INFORMATION
  Report Type: Report from Study
  Country: None (occurrence: US)
  Receive Date: 20200302
  Receipt Date: 20200302
  Transmission Date: 20200409
  Serious: Yes (Other)
  Sender: FDA-Public Use
  Company Number: US-ABBVIE-20P-163-3294055-00

PATIENT
  Sex: Male

DRUGS (1)
  1. IMBRUVICA [Suspect]
     Active Substance: IBRUTINIB
     Indication: DIFFUSE LARGE B-CELL LYMPHOMA
     Route: 048

REACTIONS (12)
  - Lymphoma [Unknown]
  - Nausea [Not Recovered/Not Resolved]
  - Oral discomfort [Unknown]
  - Spleen disorder [Unknown]
  - Oral pain [Unknown]
  - Decreased appetite [Not Recovered/Not Resolved]
  - Burning sensation [Unknown]
  - Weight decreased [Unknown]
  - Dysgeusia [Unknown]
  - Abdominal pain [Not Recovered/Not Resolved]
  - Stomatitis [Not Recovered/Not Resolved]
  - Muscle spasms [Not Recovered/Not Resolved]
